FAERS Safety Report 16143524 (Version 1)
Quarter: 2019Q2

REPORT INFORMATION
  Report Type: Spontaneous
  Country: FR (occurrence: FR)
  Receive Date: 20190401
  Receipt Date: 20190401
  Transmission Date: 20190711
  Serious: Yes (Other)
  Sender: FDA-Public Use
  Company Number: FR-AMERIGEN PHARMACEUTICALS, INC-2019AMG000013

PATIENT

DRUGS (3)
  1. NIVOLUMAB [Suspect]
     Active Substance: NIVOLUMAB
     Indication: GLIOBLASTOMA
     Dosage: 3 MG/KG, EVERY 15 DAYS
     Route: 065
  2. TEMOZOLOMIDE UNKNOWN [Suspect]
     Active Substance: TEMOZOLOMIDE
     Dosage: UNK, ADJUVANT TMZ WAS STARTED
     Route: 065
  3. TEMOZOLOMIDE UNKNOWN [Suspect]
     Active Substance: TEMOZOLOMIDE
     Indication: GLIOBLASTOMA
     Dosage: UNK, CONCOMITANT TMZ
     Route: 065

REACTIONS (5)
  - Vision blurred [Unknown]
  - Central nervous system inflammation [Recovered/Resolved]
  - Nervous system disorder [Recovered/Resolved]
  - Neutropenia [Unknown]
  - Thrombocytopenia [Unknown]
